FAERS Safety Report 19624829 (Version 12)
Quarter: 2023Q1

REPORT INFORMATION
  Report Type: Spontaneous
  Country: US (occurrence: US)
  Receive Date: 20210728
  Receipt Date: 20230223
  Transmission Date: 20230418
  Serious: Yes (Other)
  Sender: FDA-Public Use
  Company Number: US-INDIVIOR US-INDV-130549-2021

PATIENT

DRUGS (1)
  1. SUBOXONE [Suspect]
     Active Substance: BUPRENORPHINE HYDROCHLORIDE\NALOXONE HYDROCHLORIDE
     Indication: Pain
     Dosage: 8 MILLIGRAM, QD
     Route: 065
     Dates: start: 2011

REACTIONS (20)
  - Suicidal ideation [Unknown]
  - Off label use [Unknown]
  - Tooth socket haemorrhage [Unknown]
  - Inappropriate schedule of product discontinuation [Unknown]
  - Sleep disorder [Not Recovered/Not Resolved]
  - Tongue haemorrhage [Unknown]
  - Cognitive disorder [Not Recovered/Not Resolved]
  - Dental caries [Unknown]
  - Tooth loss [Not Recovered/Not Resolved]
  - Teeth brittle [Unknown]
  - Euphoric mood [Unknown]
  - Amnesia [Unknown]
  - Drug withdrawal syndrome [Unknown]
  - Pain [Unknown]
  - Drug dependence [Unknown]
  - Anxiety [Unknown]
  - Toothache [Not Recovered/Not Resolved]
  - Depression [Unknown]
  - Tongue injury [Not Recovered/Not Resolved]
  - Constipation [Unknown]

NARRATIVE: CASE EVENT DATE: 20220101
